FAERS Safety Report 19394323 (Version 1)
Quarter: 2021Q2

REPORT INFORMATION
  Report Type: Spontaneous
  Country: GB (occurrence: GB)
  Receive Date: 20210609
  Receipt Date: 20210609
  Transmission Date: 20210717
  Serious: Yes (Hospitalization)
  Sender: FDA-Public Use
  Company Number: GB-GLENMARK PHARMACEUTICALS-2021GMK054360

PATIENT
  Sex: Male

DRUGS (2)
  1. ZONISAMIDE. [Suspect]
     Active Substance: ZONISAMIDE
     Indication: PARTIAL SEIZURES
     Dosage: 25 MILLIGRAM, OD
     Route: 065
     Dates: start: 202101
  2. ZONISAMIDE. [Suspect]
     Active Substance: ZONISAMIDE
     Dosage: 100 MILLIGRAM, QD (GRADUALLY THE DOSE WAS TITRATED TO 50 MILLIGRAM TWICE A DAY)
     Route: 065
     Dates: start: 202101

REACTIONS (2)
  - Treatment noncompliance [Unknown]
  - Product dose omission issue [Unknown]
